FAERS Safety Report 6589373-1 (Version None)
Quarter: 2010Q1

REPORT INFORMATION
  Report Type: 
  Country: None (occurrence: None)
  Receive Date: 20100212
  Receipt Date: 20100127
  Transmission Date: 20100710
  Serious: Yes (Hospitalization)
  Sender: FDA-Public Use
  Company Number: VISP-UK-1001S-0028

PATIENT
  Sex: Female

DRUGS (5)
  1. VISIPAQUE [Suspect]
     Indication: DRUG USE FOR UNKNOWN INDICATION
     Dosage: SINGLE DOSE, I.A.
     Route: 014
     Dates: start: 20091218, end: 20091218
  2. HEPARINISED SALINE [Concomitant]
  3. ACETULSALICYLIC ACID (ASPIRIN) [Concomitant]
  4. CLOPIDOGREL [Concomitant]
  5. LIDOCAINE 2% [Concomitant]

REACTIONS (1)
  - CRANIAL NERVE PARALYSIS [None]
